FAERS Safety Report 16416846 (Version 1)
Quarter: 2019Q2

REPORT INFORMATION
  Report Type: Spontaneous
  Country: CA (occurrence: CA)
  Receive Date: 20190611
  Receipt Date: 20190611
  Transmission Date: 20190711
  Serious: Yes (Disabling)
  Sender: FDA-Public Use
  Company Number: CA-TEVA-2019-CA-1061297

PATIENT
  Age: 24 Year
  Sex: Female
  Weight: 52 kg

DRUGS (4)
  1. CIPROFLOXACIN HYDROCHLORIDE. [Concomitant]
     Active Substance: CIPROFLOXACIN HYDROCHLORIDE
     Indication: PRODUCT USED FOR UNKNOWN INDICATION
     Route: 065
  2. PREDNISONE. [Suspect]
     Active Substance: PREDNISONE
     Indication: CYSTIC FIBROSIS
  3. DOXYTAB/00055701/ [Concomitant]
     Indication: PRODUCT USED FOR UNKNOWN INDICATION
     Route: 065
  4. PREDNISONE. [Suspect]
     Active Substance: PREDNISONE
     Indication: LUNG INFECTION
     Dosage: 10 DOSAGE FORMS DAILY;
     Route: 048

REACTIONS (1)
  - Hallucination, visual [Recovered/Resolved]
